FAERS Safety Report 13069252 (Version 1)
Quarter: 2016Q4

REPORT INFORMATION
  Report Type: Spontaneous
  Country: US (occurrence: US)
  Receive Date: 20161228
  Receipt Date: 20161228
  Transmission Date: 20170207
  Serious: No
  Sender: FDA-Public Use
  Company Number: PHEH2016US033806

PATIENT
  Age: 49 Year
  Sex: Female

DRUGS (2)
  1. MEKINIST [Suspect]
     Active Substance: TRAMETINIB DIMETHYL SULFOXIDE
     Indication: CRANIOPHARYNGIOMA BENIGN
     Dosage: 2 MG, UNK
     Route: 048
     Dates: start: 20160501
  2. TAFINLAR [Suspect]
     Active Substance: DABRAFENIB MESYLATE
     Indication: CRANIOPHARYNGIOMA BENIGN
     Dosage: 150 MG, QD
     Route: 048
     Dates: start: 20160501

REACTIONS (1)
  - Confusional state [Unknown]

NARRATIVE: CASE EVENT DATE: 20161222
